FAERS Safety Report 4665314-9 (Version None)
Quarter: 2005Q2

REPORT INFORMATION
  Report Type: 
  Country: None (occurrence: None)
  Receive Date: 20050517
  Receipt Date: 20050506
  Transmission Date: 20051028
  Serious: Yes (Hospitalization, Other)
  Sender: FDA-Public Use
  Company Number: 2005072011

PATIENT
  Age: 54 Year
  Sex: Female
  Weight: 54.4316 kg

DRUGS (4)
  1. GEODON [Suspect]
     Indication: BIPOLAR DISORDER
     Dosage: ORAL
     Route: 048
     Dates: start: 20011021, end: 20011224
  2. GEODON [Suspect]
     Indication: HALLUCINATION
     Dosage: ORAL
     Route: 048
     Dates: start: 20011021, end: 20011224
  3. CITALOPRAM HYDROBROMIDE [Concomitant]
  4. VALPROATE SODIUM [Concomitant]

REACTIONS (7)
  - ADVERSE EVENT [None]
  - BRAIN DAMAGE [None]
  - CARDIAC ARREST [None]
  - COMA [None]
  - HYPOXIA [None]
  - RESPIRATORY ARREST [None]
  - WEIGHT INCREASED [None]
